FAERS Safety Report 10525283 (Version 1)
Quarter: 2014Q4

REPORT INFORMATION
  Report Type: Spontaneous
  Country: US (occurrence: None)
  Receive Date: 20141015
  Receipt Date: 20141015
  Transmission Date: 20150528
  Serious: No
  Sender: FDA-Public Use
  Company Number: None

PATIENT
  Age: 80 Year
  Sex: Male

DRUGS (1)
  1. LEVOTHYROXIN [Suspect]
     Active Substance: LEVOTHYROXINE
     Indication: THYROID DISORDER
     Dosage: ONE TAB PER DAY, ONCE DAILY, TAKEN BY MOUTH
     Route: 048
     Dates: start: 20140405, end: 20141005

REACTIONS (4)
  - Scratch [None]
  - Pruritus [None]
  - Skin ulcer [None]
  - Therapeutic response decreased [None]
